FAERS Safety Report 6153553-X (Version None)
Quarter: 2009Q2

REPORT INFORMATION
  Report Type: 
  Country: None (occurrence: None)
  Receive Date: 20090413
  Receipt Date: 20090410
  Transmission Date: 20091009
  Serious: Yes (Death)
  Sender: FDA-Public Use
  Company Number: US-ASTRAZENECA-2008UW27640

PATIENT
  Age: 16220 Day
  Sex: Female

DRUGS (3)
  1. SEROQUEL [Suspect]
     Indication: DEPRESSION
     Route: 048
     Dates: start: 20060201, end: 20061104
  2. SEROQUEL [Suspect]
     Indication: BIPOLAR DISORDER
     Route: 048
     Dates: start: 20060201, end: 20061104
  3. DEPAKOTE [Concomitant]

REACTIONS (3)
  - DEATH [None]
  - DIABETES MELLITUS [None]
  - DIABETIC COMPLICATION [None]
